FAERS Safety Report 14533063 (Version 1)
Quarter: 2018Q1

REPORT INFORMATION
  Report Type: Spontaneous
  Country: FR (occurrence: FR)
  Receive Date: 20180215
  Receipt Date: 20180215
  Transmission Date: 20180509
  Serious: Yes (Other)
  Sender: FDA-Public Use
  Company Number: FR-CIPLA LTD.-2018FR03620

PATIENT

DRUGS (7)
  1. PANTOPRAZOLE MYLAN PHARMA [Suspect]
     Active Substance: PANTOPRAZOLE
     Indication: ACUTE CORONARY SYNDROME
     Dosage: 20 MG, 0-0-1 PER DAY
     Route: 048
     Dates: start: 20171102
  2. PRASUGREL. [Suspect]
     Active Substance: PRASUGREL
     Indication: ACUTE CORONARY SYNDROME
     Dosage: 10 MG, 1-0-0 PER DAY
     Route: 048
     Dates: start: 20171112
  3. ATORVASTATIN [Suspect]
     Active Substance: ATORVASTATIN
     Indication: ACUTE CORONARY SYNDROME
     Dosage: 80 MG, 0-0-2 PER DAY
     Route: 048
     Dates: start: 20171112, end: 20171124
  4. IRBESARTAN. [Suspect]
     Active Substance: IRBESARTAN
     Indication: ACUTE CORONARY SYNDROME
     Dosage: 150 MG, 1-0-0 PER DAY
     Route: 048
     Dates: start: 20171112
  5. KARDEGIC [Suspect]
     Active Substance: ASPIRIN DL-LYSINE
     Indication: ACUTE CORONARY SYNDROME
     Dosage: 75 MG, 1-0-0 PER DAY
     Route: 048
     Dates: start: 20171112
  6. AMLODIPINE [Suspect]
     Active Substance: AMLODIPINE BESYLATE
     Indication: HYPERTENSION
     Dosage: 5 MG, 1-0-0 PER DAY
     Route: 048
  7. TENORMIN [Suspect]
     Active Substance: ATENOLOL
     Indication: ACUTE CORONARY SYNDROME
     Dosage: 50 MG, 1-0-0 PER DAY
     Route: 048
     Dates: start: 20171112

REACTIONS (1)
  - Hepatocellular injury [Recovered/Resolved]

NARRATIVE: CASE EVENT DATE: 20171124
